FAERS Safety Report 4639626-9 (Version None)
Quarter: 2005Q2

REPORT INFORMATION
  Report Type: 
  Country: None (occurrence: None)
  Receive Date: 20050415
  Receipt Date: 20050406
  Transmission Date: 20051028
  Serious: Yes (Other)
  Sender: FDA-Public Use
  Company Number: GXKR2005SE00514

PATIENT
  Age: 38 Year
  Sex: Male

DRUGS (2)
  1. METFORMIN SANDOZ (NGX) (METFORMIN) FILM-COATED TABLET [Suspect]
     Indication: DIABETES MELLITUS NON-INSULIN-DEPENDENT
     Dosage: 500 MG, QD, ORAL
     Route: 048
     Dates: start: 20041027
  2. METFORMIN ^ALPHARMA^ (METFORMIN HYDROCHLORIDE) [Suspect]
     Indication: DIABETES MELLITUS NON-INSULIN-DEPENDENT
     Dosage: 500 MG, QD,ORAL
     Route: 048
     Dates: start: 20040726, end: 20041026

REACTIONS (4)
  - BLOOD URINE PRESENT [None]
  - IMPAIRED WORK ABILITY [None]
  - NEPHROLITHIASIS [None]
  - PHARMACEUTICAL PRODUCT COMPLAINT [None]
